FAERS Safety Report 6414162-8 (Version None)
Quarter: 2009Q4

REPORT INFORMATION
  Report Type: 
  Country: None (occurrence: None)
  Receive Date: 20091026
  Receipt Date: 20091015
  Transmission Date: 20100525
  Serious: Yes (Hospitalization)
  Sender: FDA-Public Use
  Company Number: FR-PFIZER INC-2009283386

PATIENT
  Age: 60 Year

DRUGS (22)
  1. ALDACTONE [Suspect]
     Indication: PRIMARY HYPERALDOSTERONISM
     Dosage: 25 MG, 1X/DAY
     Route: 048
  2. IRBESARTAN [Suspect]
     Indication: HYPERTENSION
     Dosage: 75 MG, 1X/DAY
     Route: 048
  3. LYRICA [Concomitant]
     Dosage: 75 MG, UNK
  4. LASILIX [Concomitant]
     Dosage: 40 MG, UNK
  5. LOVENOX [Concomitant]
     Dosage: UNK
  6. KARDEGIC [Concomitant]
     Dosage: 75 MG, UNK
     Route: 048
  7. INIPOMP [Concomitant]
     Dosage: 20 MG, UNK
  8. DIFFU K [Concomitant]
  9. PLAVIX [Concomitant]
  10. ACETAMINOPHEN [Concomitant]
     Dosage: 500 MG, UNK
  11. CRESTOR [Concomitant]
     Dosage: 20 MG, UNK
  12. NEBIVOLOL [Concomitant]
  13. HYPERIUM [Concomitant]
  14. AMLODIPINE BESYLATE [Concomitant]
     Dosage: 5 MG, UNK
  15. EZETROL [Concomitant]
     Dosage: 10 MG, UNK
  16. MEDIATOR [Concomitant]
     Dosage: 150 MG, UNK
  17. FORADIL [Concomitant]
  18. SPIRIVA [Concomitant]
  19. ZYLORIC [Concomitant]
     Dosage: 100 MG, UNK
  20. LANTUS [Concomitant]
  21. ACTRAPID [Concomitant]
  22. DANTRIUM [Concomitant]

REACTIONS (2)
  - BLOOD CREATININE INCREASED [None]
  - HYPERKALAEMIA [None]
